FAERS Safety Report 13976260 (Version 3)
Quarter: 2018Q2

REPORT INFORMATION
  Report Type: Report from Study
  Country: US (occurrence: US)
  Receive Date: 20170915
  Receipt Date: 20180521
  Transmission Date: 20180711
  Serious: No
  Sender: FDA-Public Use
  Company Number: PHEH2017US029800

PATIENT
  Sex: Male

DRUGS (3)
  1. ILARIS [Suspect]
     Active Substance: CANAKINUMAB
     Indication: STILL^S DISEASE
     Dosage: UNK, EVERY 4 WEEKS
     Route: 065
     Dates: start: 20170908
  2. ILARIS [Suspect]
     Active Substance: CANAKINUMAB
     Dosage: 260 MG, UNK
     Route: 065
  3. ILARIS [Suspect]
     Active Substance: CANAKINUMAB
     Dosage: UNK, EVERY 4 WEEKS
     Route: 065
     Dates: start: 20171009

REACTIONS (3)
  - Inappropriate schedule of drug administration [Unknown]
  - Arthralgia [Unknown]
  - Weight decreased [Unknown]
